FAERS Safety Report 6677297-0 (Version None)
Quarter: 2010Q2

REPORT INFORMATION
  Report Type: 
  Country: None (occurrence: None)
  Receive Date: 20100412
  Receipt Date: 20100408
  Transmission Date: 20101027
  Serious: Yes (Death, Hospitalization)
  Sender: FDA-Public Use
  Company Number: US-WYE-H14428310

PATIENT
  Age: 47 Year
  Sex: Male

DRUGS (3)
  1. TEMSIROLIMUS [Suspect]
     Indication: SQUAMOUS CELL CARCINOMA
     Dosage: 15 MG - FREQUENCY NOT PROVIDED
     Route: 042
     Dates: start: 20100215, end: 20100329
  2. CARBOPLATIN [Suspect]
     Indication: SQUAMOUS CELL CARCINOMA
     Dosage: NOT PROVIDED
     Route: 065
     Dates: start: 20100215, end: 20100329
  3. TAXOL [Suspect]
     Indication: SQUAMOUS CELL CARCINOMA
     Dosage: 80 MG/M2 - FREQUENCY NOT PROVIDED
     Route: 042
     Dates: start: 20100215, end: 20100329

REACTIONS (6)
  - INTERNATIONAL NORMALISED RATIO INCREASED [None]
  - NEUTROPENIA [None]
  - PNEUMONIA [None]
  - PULMONARY HAEMORRHAGE [None]
  - SEPTIC SHOCK [None]
  - STREPTOCOCCAL SEPSIS [None]
